FAERS Safety Report 16119502 (Version 1)
Quarter: 2019Q1

REPORT INFORMATION
  Report Type: Spontaneous
  Country: FR (occurrence: FR)
  Receive Date: 20190326
  Receipt Date: 20190326
  Transmission Date: 20190418
  Serious: Yes (Other)
  Sender: FDA-Public Use
  Company Number: FR-GLAXOSMITHKLINE-FR2019052442

PATIENT
  Age: 54 Year
  Sex: Male

DRUGS (6)
  1. DIAZEPAM. [Interacting]
     Active Substance: DIAZEPAM
     Indication: ANXIETY
     Dosage: 30 MG, QD
     Route: 048
     Dates: start: 20181209
  2. SCOPODERM TTS [Suspect]
     Active Substance: SCOPOLAMINE
     Indication: SALIVARY HYPERSECRETION
     Dosage: 1 DF, UNK
     Route: 062
     Dates: start: 20181227, end: 20190206
  3. TRIMEPRAZINE TARTRATE [Suspect]
     Active Substance: TRIMEPRAZINE TARTRATE
     Indication: INSOMNIA
     Dosage: 30 MG, QD
     Route: 048
     Dates: start: 20181209, end: 20190104
  4. CLOZAPINE. [Interacting]
     Active Substance: CLOZAPINE
     Indication: SCHIZOPHRENIA
     Dosage: 400 MG, QD
     Route: 048
     Dates: start: 20181209
  5. HALDOL [Interacting]
     Active Substance: HALOPERIDOL
     Indication: SCHIZOPHRENIA
     Dosage: 30 MG, QD
     Route: 048
     Dates: start: 20181209
  6. LOXAPAC [Interacting]
     Active Substance: LOXAPINE
     Indication: PSYCHOTIC DISORDER
     Dosage: 100 MG, QD
     Route: 048
     Dates: start: 20181209, end: 20190107

REACTIONS (1)
  - Constipation [Recovered/Resolved]

NARRATIVE: CASE EVENT DATE: 20181228
